FAERS Safety Report 21948182 (Version 1)
Quarter: 2023Q1

REPORT INFORMATION
  Report Type: Spontaneous
  Country: US (occurrence: US)
  Receive Date: 20230203
  Receipt Date: 20230203
  Transmission Date: 20230418
  Serious: Yes (Other)
  Sender: FDA-Public Use
  Company Number: US-TEVA-2023-US-2850350

PATIENT
  Age: 46 Year
  Sex: Female

DRUGS (6)
  1. PREDNISONE [Suspect]
     Active Substance: PREDNISONE
     Indication: Immunosuppressant drug therapy
     Route: 065
  2. POSACONAZOLE [Suspect]
     Active Substance: POSACONAZOLE
     Indication: Disseminated blastomycosis
     Route: 065
  3. AZATHIOPRINE [Suspect]
     Active Substance: AZATHIOPRINE
     Indication: Immunosuppressant drug therapy
     Route: 065
  4. VORICONAZOLE [Concomitant]
     Active Substance: VORICONAZOLE
     Indication: Disseminated blastomycosis
     Route: 065
  5. AMPHOTERICIN B [Concomitant]
     Active Substance: AMPHOTERICIN B
     Indication: Disseminated blastomycosis
     Route: 065
  6. ITRACONAZOLE [Concomitant]
     Active Substance: ITRACONAZOLE
     Indication: Disseminated blastomycosis
     Route: 065

REACTIONS (2)
  - Disseminated blastomycosis [Recovered/Resolved]
  - Pyrexia [Unknown]
